FAERS Safety Report 8257857-6 (Version None)
Quarter: 2012Q2

REPORT INFORMATION
  Report Type: 
  Country: None (occurrence: None)
  Receive Date: 20120404
  Receipt Date: 20120326
  Transmission Date: 20120825
  Serious: Yes (Other)
  Sender: FDA-Public Use
  Company Number: US-ELI_LILLY_AND_COMPANY-US201203008448

PATIENT
  Sex: Female

DRUGS (3)
  1. HUMALOG [Suspect]
     Dosage: UNK, EACH EVENING
  2. HUMALOG [Suspect]
     Indication: DIABETES MELLITUS
     Dosage: UNK UNK, EACH MORNING
  3. HUMALOG [Suspect]
     Dosage: WITH MEALS

REACTIONS (4)
  - BLOOD GLUCOSE INCREASED [None]
  - LIVER TRANSPLANT [None]
  - THYROID DISORDER [None]
  - HYPERTENSION [None]
